FAERS Safety Report 8829524 (Version 2)
Quarter: 2013Q1

REPORT INFORMATION
  Report Type: Spontaneous
  Country: US (occurrence: US)
  Receive Date: 20121008
  Receipt Date: 20130124
  Transmission Date: 20140127
  Serious: No
  Sender: FDA-Public Use
  Company Number: US-009507513-1210USA002454

PATIENT
  Sex: Female

DRUGS (1)
  1. MIRALAX [Suspect]
     Indication: FAECES HARD
     Dosage: UNK, UNKNOWN
     Route: 048

REACTIONS (3)
  - Discomfort [Unknown]
  - Drug ineffective [Unknown]
  - Expired drug administered [Unknown]
